FAERS Safety Report 5105764-X (Version None)
Quarter: 2006Q3

REPORT INFORMATION
  Report Type: 
  Country: None (occurrence: None)
  Receive Date: 20060915
  Receipt Date: 20050905
  Transmission Date: 20061208
  Serious: Yes (Hospitalization)
  Sender: FDA-Public Use
  Company Number: JP-ROCHE-416846

PATIENT
  Age: 40 Year
  Sex: Female

DRUGS (45)
  1. TOCILIZUMAB [Suspect]
     Indication: CASTLEMAN'S DISEASE
     Dosage: IN MRA005JP
     Route: 042
  2. TOCILIZUMAB [Suspect]
     Route: 041
     Dates: start: 20040608
  3. TOCILIZUMAB [Suspect]
     Route: 041
     Dates: start: 20010829, end: 20020612
  4. TOCILIZUMAB [Suspect]
     Route: 041
     Dates: start: 20020621, end: 20020909
  5. TOCILIZUMAB [Suspect]
     Route: 041
     Dates: start: 20020920, end: 20021220
  6. TOCILIZUMAB [Suspect]
     Route: 041
     Dates: start: 20021227, end: 20021227
  7. TOCILIZUMAB [Suspect]
     Route: 041
     Dates: start: 20030110, end: 20030110
  8. TOCILIZUMAB [Suspect]
     Route: 041
     Dates: start: 20030117, end: 20030410
  9. TOCILIZUMAB [Suspect]
     Route: 041
     Dates: start: 20030425, end: 20030711
  10. TOCILIZUMAB [Suspect]
     Route: 041
     Dates: start: 20030131, end: 20031113
  11. TOCILIZUMAB [Suspect]
     Route: 041
     Dates: start: 20031127, end: 20040109
  12. TOCILIZUMAB [Suspect]
     Route: 041
     Dates: start: 20040127, end: 20040521
  13. CALONAL [Concomitant]
     Route: 048
     Dates: start: 20041204
  14. ISODINE [Concomitant]
     Dosage: ROUTE REPORTED AS OROPHARINGEAL AND DOSE FORM AS GARGLE
     Route: 048
     Dates: start: 20020306
  15. FERROMIA [Concomitant]
     Dosage: 50 MG ONCE DAILY(OD) 14 MAR 2003 TO 22 MAY 2003, 200 MG OD FROM 1 AUG TO 5 SEP 2003, 100 MG OD FROM+
     Route: 048
     Dates: start: 20030314
  16. LACTEC G [Concomitant]
     Dosage: ROUTE REPORTED AS INJECTABLE
     Dates: start: 20030627, end: 20030627
  17. SOLITA-T [Concomitant]
     Dosage: 1000ML OD 28-29 JUNE 2003, 500ML OD 2-3 JULY 2003, 14-15 JULY 2003, 12-15 SEPT 2005.
     Dates: start: 20030628, end: 20050915
  18. PHYSIO 35 [Concomitant]
     Dates: start: 20030628, end: 20030729
  19. AMICALIQ [Concomitant]
     Dosage: ROUTE REPORTED AS INJECTABLE
     Dates: start: 20030629, end: 20030701
  20. NEOLAMIN 3 B [Concomitant]
     Dosage: ROUTE REPORTED AS INJECTABLE
     Dates: start: 20030708, end: 20030708
  21. GLUCOSE [Concomitant]
     Dates: start: 20030709, end: 20030710
  22. 1 CONCOMITANT DRUG [Concomitant]
     Dosage: ROUTE REPORTED AS INJECTABLE
     Dates: start: 20030709, end: 20030710
  23. VEEN-F [Concomitant]
     Route: 042
     Dates: start: 20030713, end: 20030912
  24. MEYLON [Concomitant]
     Dosage: ROUTE REPORTED AS INJECTABLE
     Dates: start: 20030713, end: 20030722
  25. MERISLON [Concomitant]
     Route: 048
     Dates: start: 20030114, end: 20030730
  26. ADENOSINE TRIPHOSPHATE DISODIUM [Concomitant]
     Route: 048
     Dates: start: 20030716, end: 20030727
  27. LEVOFLOXACIN [Concomitant]
     Route: 048
     Dates: start: 20030718, end: 20050920
  28. CYANOCOBALAMIN [Concomitant]
     Route: 048
     Dates: start: 20030721, end: 20030730
  29. 1 CONCOMITANT DRUG [Concomitant]
     Dosage: NO DRUG NAME REPORTED
     Route: 061
     Dates: start: 20030806, end: 20030810
  30. VALTREX [Concomitant]
     Route: 048
     Dates: start: 20030901, end: 20030909
  31. ANDERM [Concomitant]
     Route: 061
     Dates: start: 20030901, end: 20030908
  32. SOLITA-T1 [Concomitant]
     Dosage: ROUTE REPORTED AS INJECTABLE
     Dates: start: 20030911, end: 20030912
  33. PRIMPERAN TAB [Concomitant]
     Dates: start: 20030911, end: 20040706
  34. LACTEC [Concomitant]
     Dates: start: 20040618, end: 20040706
  35. FLOMOX [Concomitant]
     Route: 048
     Dates: start: 20040917, end: 20050521
  36. MUCOSOLVAN [Concomitant]
     Route: 048
     Dates: start: 20040917, end: 20040925
  37. MEDICON [Concomitant]
     Route: 048
     Dates: start: 20040921, end: 20040925
  38. PRONASE [Concomitant]
     Route: 048
     Dates: start: 20050210, end: 20050901
  39. SODIUM BICARBONATE [Concomitant]
     Route: 048
     Dates: start: 20050210, end: 20050901
  40. GASCON [Concomitant]
     Route: 048
     Dates: start: 20050210, end: 20050901
  41. XYLOCAINE [Concomitant]
     Route: 048
     Dates: start: 20050210, end: 20050901
  42. XYLOCAINE [Concomitant]
     Route: 061
     Dates: start: 20050210, end: 20050901
  43. BUSCOPAN [Concomitant]
     Dates: start: 20050210, end: 20050901
  44. TAMIFLU [Concomitant]
     Route: 048
     Dates: start: 20050215, end: 20050217
  45. GASTER [Concomitant]
     Route: 048
     Dates: start: 20050309, end: 20050309

REACTIONS (8)
  - ARTHRALGIA [None]
  - CHOLELITHIASIS [None]
  - DIARRHOEA [None]
  - HEADACHE [None]
  - HYPOAESTHESIA [None]
  - LIGAMENT RUPTURE [None]
  - UPPER RESPIRATORY TRACT INFLAMMATION [None]
  - VOMITING [None]
